FAERS Safety Report 25176390 (Version 1)
Quarter: 2025Q2

REPORT INFORMATION
  Report Type: Spontaneous
  Country: US (occurrence: US)
  Receive Date: 20250409
  Receipt Date: 20250409
  Transmission Date: 20250716
  Serious: No
  Sender: GLENMARK
  Company Number: US-GLENMARK PHARMACEUTICALS-2024GMK090728

PATIENT

DRUGS (1)
  1. CLOBETASOL PROPIONATE [Suspect]
     Active Substance: CLOBETASOL PROPIONATE
     Indication: Lice infestation
     Dosage: UNK, BID, (ONCE IN THE MORNING, ONCE IN THE EVENING)
     Route: 065

REACTIONS (1)
  - Drug ineffective for unapproved indication [Unknown]
